FAERS Safety Report 9242251 (Version 2)
Quarter: 2013Q2

REPORT INFORMATION
  Report Type: Spontaneous
  Country: IE (occurrence: IE)
  Receive Date: 20130419
  Receipt Date: 20130503
  Transmission Date: 20140414
  Serious: Yes (Hospitalization)
  Sender: FDA-Public Use
  Company Number: IE-BRISTOL-MYERS SQUIBB COMPANY-18787333

PATIENT
  Sex: Female

DRUGS (20)
  1. ABILIFY [Suspect]
  2. FLORINEF [Suspect]
  3. COMBIVENT [Suspect]
     Route: 045
  4. LYRICA [Suspect]
  5. GLUCOSAMINE [Suspect]
  6. BUTRANS [Suspect]
     Route: 061
  7. DICLOFENAC [Suspect]
     Route: 061
  8. LUSTRAL [Suspect]
  9. OXYBUTYNIN [Suspect]
  10. ONE-ALPHA [Suspect]
  11. FEMARA [Suspect]
  12. MULTIVITAMIN [Suspect]
  13. IDEOS [Suspect]
  14. ZANIDIP [Concomitant]
  15. COZAAR [Concomitant]
  16. BURINEX [Concomitant]
  17. CRESTOR [Concomitant]
  18. ELTROXIN [Concomitant]
  19. OMEPRAZOLE [Concomitant]
  20. ZOPICLONE [Concomitant]

REACTIONS (1)
  - Pulmonary embolism [Unknown]
